FAERS Safety Report 18853884 (Version 1)
Quarter: 2021Q1

REPORT INFORMATION
  Report Type: Spontaneous
  Country: US (occurrence: US)
  Receive Date: 20210205
  Receipt Date: 20210205
  Transmission Date: 20210420
  Serious: Yes (Other)
  Sender: FDA-Public Use
  Company Number: US-BAYER-2021-041915

PATIENT
  Age: 35 Year
  Sex: Female

DRUGS (3)
  1. CALCIUM CARBONATE. [Suspect]
     Active Substance: CALCIUM CARBONATE
     Indication: SUPPLEMENTATION THERAPY
  2. DOLUTEGRAVIR [Suspect]
     Active Substance: DOLUTEGRAVIR
  3. PRENATAL VITAMINS [MINERALS NOS;VITAMINS NOS] [Concomitant]
     Active Substance: MINERALS\VITAMINS

REACTIONS (4)
  - Product use in unapproved indication [None]
  - HIV viraemia [None]
  - Maternal exposure during pregnancy [None]
  - Labelled drug-drug interaction medication error [None]
